FAERS Safety Report 8417965 (Version 6)
Quarter: 2012Q4

REPORT INFORMATION
  Report Type: Report from Study
  Country: US (occurrence: US)
  Receive Date: 20120221
  Receipt Date: 20120912
  Transmission Date: 20130627
  Serious: Yes (Hospitalization)
  Sender: FDA-Public Use
  Company Number: US-BRISTOL-MYERS SQUIBB COMPANY-16221525

PATIENT
  Age: 50 Year
  Sex: Male
  Weight: 69 kg

DRUGS (1)
  1. IPILIMUMAB [Suspect]
     Indication: MALIGNANT MELANOMA
     Dosage: Last administered dt:17Oct2011,10mg/kg over 90min,q3 weeks*4doses,q12 on weeks 24,36,48+60.
     Route: 042
     Dates: start: 20111017

REACTIONS (6)
  - Pancreatitis [Recovered/Resolved]
  - Colitis [Recovered/Resolved]
  - Myalgia [Recovered/Resolved]
  - Lipase increased [Recovered/Resolved]
  - Dehydration [Recovered/Resolved]
  - Vomiting [Recovered/Resolved]
